FAERS Safety Report 9657471 (Version 1)
Quarter: 2013Q4

REPORT INFORMATION
  Report Type: Spontaneous
  Country: US (occurrence: US)
  Receive Date: 20131030
  Receipt Date: 20131030
  Transmission Date: 20140711
  Serious: Yes (Other)
  Sender: FDA-Public Use
  Company Number: US-NAPPMUNDI-USA-2011-0077670

PATIENT
  Sex: Male

DRUGS (2)
  1. OXYCODONE HYDROCHLORIDE (SIMILAR TO NDA 20-553) [Suspect]
     Indication: PRODUCT USED FOR UNKNOWN INDICATION
  2. VICODIN [Suspect]
     Indication: PRODUCT USED FOR UNKNOWN INDICATION

REACTIONS (3)
  - Drug dependence [Unknown]
  - General physical health deterioration [Unknown]
  - Pain [Unknown]
